FAERS Safety Report 10026321 (Version 4)
Quarter: 2014Q2

REPORT INFORMATION
  Report Type: Spontaneous
  Country: CA (occurrence: CA)
  Receive Date: 20140321
  Receipt Date: 20140401
  Transmission Date: 20141212
  Serious: Yes (Hospitalization, Other)
  Sender: FDA-Public Use
  Company Number: CA-ROCHE-1357472

PATIENT
  Age: 38 Year
  Sex: Female

DRUGS (3)
  1. RITUXAN [Suspect]
     Indication: THROMBOTIC THROMBOCYTOPENIC PURPURA
     Route: 042
     Dates: start: 201110
  2. RITUXAN [Suspect]
     Route: 042
     Dates: start: 20140303
  3. RITUXAN [Suspect]
     Route: 042
     Dates: start: 20140305

REACTIONS (20)
  - Thrombotic thrombocytopenic purpura [Unknown]
  - Neutrophil count increased [Unknown]
  - Helicobacter infection [Unknown]
  - Upper respiratory tract infection [Recovered/Resolved]
  - Drug hypersensitivity [Recovered/Resolved]
  - Off label use [Unknown]
  - White blood cell count increased [Unknown]
  - Blood urea increased [Unknown]
  - Mean cell volume increased [Unknown]
  - Lymphocyte count decreased [Unknown]
  - Red blood cell count decreased [Unknown]
  - Haematocrit decreased [Unknown]
  - Blood albumin decreased [Unknown]
  - Blood calcium decreased [Unknown]
  - Anion gap increased [Unknown]
  - Red cell distribution width increased [Unknown]
  - Blood potassium decreased [Unknown]
  - Blood bicarbonate increased [Unknown]
  - Haemoglobin decreased [Unknown]
  - Blood chloride decreased [Unknown]
